FAERS Safety Report 8567723-4 (Version None)
Quarter: 2012Q3

REPORT INFORMATION
  Report Type: 
  Country: None (occurrence: None)
  Receive Date: 20120803
  Receipt Date: 20120802
  Transmission Date: 20120928
  Serious: No
  Sender: FDA-Public Use
  Company Number: US-BAYER-2012-078582

PATIENT
  Sex: Female
  Weight: 68.027 kg

DRUGS (4)
  1. TIMOLOL MALEATE [Concomitant]
     Dosage: 5 MG
  2. TRAVATAN [Concomitant]
  3. MULTI-VITAMIN [Concomitant]
  4. BETASERON [Suspect]
     Dosage: 250 ?G, QOD
     Route: 058
     Dates: start: 20100101

REACTIONS (3)
  - INFLUENZA LIKE ILLNESS [None]
  - HEADACHE [None]
  - FATIGUE [None]
